FAERS Safety Report 9353065 (Version 1)
Quarter: 2013Q2

REPORT INFORMATION
  Report Type: Spontaneous
  Country: ES (occurrence: ES)
  Receive Date: 20130618
  Receipt Date: 20130618
  Transmission Date: 20140414
  Serious: Yes (Hospitalization)
  Sender: FDA-Public Use
  Company Number: ES-MYLANLABS-2013S1012496

PATIENT
  Age: 32 Year
  Sex: Male

DRUGS (9)
  1. DIPYRONE [Suspect]
     Route: 048
  2. DIMETICONE [Suspect]
     Route: 048
  3. METOCLOPRAMIDE [Suspect]
     Route: 048
  4. OXAZEPAM [Suspect]
     Route: 048
  5. ISPAGHULA [Suspect]
     Route: 048
  6. HYPERICUM [Suspect]
     Route: 048
  7. PASSIFLORA INCARNATA [Suspect]
     Route: 048
  8. IBUPROFEN [Suspect]
     Route: 065
  9. PARACETAMOL [Concomitant]
     Route: 065

REACTIONS (2)
  - Drug reaction with eosinophilia and systemic symptoms [Recovering/Resolving]
  - Hepatic failure [Recovering/Resolving]
